FAERS Safety Report 11715840 (Version 2)
Quarter: 2015Q4

REPORT INFORMATION
  Report Type: Spontaneous
  Country: US (occurrence: US)
  Receive Date: 20151104
  Receipt Date: 20151110
  Transmission Date: 20160304
  Serious: No
  Sender: FDA-Public Use
  Company Number: US-ELI_LILLY_AND_COMPANY-US201103003141

PATIENT
  Age: 62 Year
  Sex: Female

DRUGS (32)
  1. FORTEO [Suspect]
     Active Substance: TERIPARATIDE
     Dosage: 20 UG, QD
     Route: 065
  2. FORTEO [Suspect]
     Active Substance: TERIPARATIDE
     Dosage: 20 UG, QD
     Route: 065
  3. OMEPRAZOLE. [Concomitant]
     Active Substance: OMEPRAZOLE
     Dosage: 20 MG, BID
  4. FISH OIL [Concomitant]
     Active Substance: FISH OIL
     Dosage: 500 MG, UNK
  5. MUSCLE RELAXANTS [Concomitant]
     Active Substance: UNSPECIFIED INGREDIENT
  6. CINNAMON. [Concomitant]
     Active Substance: CINNAMON
  7. MULTIVITAMIN [Concomitant]
     Active Substance: VITAMINS
  8. FORTEO [Suspect]
     Active Substance: TERIPARATIDE
     Dosage: 20 UG, QD
     Route: 065
  9. FORTEO [Suspect]
     Active Substance: TERIPARATIDE
     Dosage: 20 UG, QD
     Route: 065
  10. THYROID THERAPY [Concomitant]
     Active Substance: UNSPECIFIED INGREDIENT
  11. CALCIUM [Concomitant]
     Active Substance: CALCIUM
     Dosage: UNK, QD
  12. FORTEO [Suspect]
     Active Substance: TERIPARATIDE
     Indication: OSTEOPOROSIS
     Dosage: 20 UG, DAILY (1/D)
     Route: 065
  13. FORTEO [Suspect]
     Active Substance: TERIPARATIDE
     Dosage: 20 UG, QD
     Route: 065
  14. CITRACAL [Concomitant]
     Active Substance: CALCIUM CITRATE
     Dates: start: 2010
  15. VITAMIN D [Concomitant]
     Active Substance: CHOLECALCIFEROL
     Dosage: 800 MG, UNK
  16. CELEXA [Concomitant]
     Active Substance: CITALOPRAM HYDROBROMIDE
     Dosage: 20 MG, QD
  17. ACTONEL [Concomitant]
     Active Substance: RISEDRONATE SODIUM
  18. ROBAXIN [Concomitant]
     Active Substance: METHOCARBAMOL
     Dosage: 500 MG, QD
  19. ADDERALL [Concomitant]
     Active Substance: AMPHETAMINE ASPARTATE\AMPHETAMINE SULFATE\DEXTROAMPHETAMINE SACCHARATE\DEXTROAMPHETAMINE SULFATE
     Dosage: 10 MG, EACH MORNING
  20. PRAVASTATIN [Concomitant]
     Active Substance: PRAVASTATIN\PRAVASTATIN SODIUM
     Dosage: 40 MG, QD
  21. ANALGESICS [Concomitant]
     Active Substance: UNSPECIFIED INGREDIENT
  22. TYLENOL EXTRA STRENGTH [Concomitant]
     Active Substance: ACETAMINOPHEN
  23. MAXALT-MLT [Concomitant]
     Active Substance: RIZATRIPTAN BENZOATE
     Indication: MIGRAINE
     Dosage: 10 MG, PRN
  24. FORTEO [Suspect]
     Active Substance: TERIPARATIDE
     Dosage: 20 UG, QD
     Route: 065
  25. DALMANE [Concomitant]
     Active Substance: FLURAZEPAM HYDROCHLORIDE
     Dosage: 15 MG, QD
  26. LEVOTHYROXINE. [Concomitant]
     Active Substance: LEVOTHYROXINE
  27. FORTEO [Suspect]
     Active Substance: TERIPARATIDE
     Dosage: 20 UG, QD
     Route: 065
  28. CALCIUM WITH VITAMIN D [Concomitant]
     Active Substance: CALCIUM\VITAMIN D
  29. HYDROCODONE [Concomitant]
     Active Substance: HYDROCODONE
     Indication: PAIN
  30. FORTEO [Suspect]
     Active Substance: TERIPARATIDE
     Dosage: 20 UG, QD
     Dates: end: 20120125
  31. NEURONTIN [Concomitant]
     Active Substance: GABAPENTIN
     Indication: FIBROMYALGIA
     Dosage: 300 MG, TID
  32. VITAMIN D3 [Concomitant]
     Active Substance: CHOLECALCIFEROL
     Dosage: 400 U, BID

REACTIONS (41)
  - Nausea [Unknown]
  - Gastric disorder [Unknown]
  - Multi-organ disorder [Unknown]
  - Malaise [Not Recovered/Not Resolved]
  - Post procedural complication [Unknown]
  - Headache [Unknown]
  - Pulmonary function test decreased [Unknown]
  - Gastrointestinal hypomotility [Recovered/Resolved]
  - Abdominal pain upper [Unknown]
  - Postoperative wound complication [Unknown]
  - Scoliosis [Unknown]
  - Myalgia [Unknown]
  - Muscular weakness [Unknown]
  - Fatigue [Unknown]
  - Accident [Unknown]
  - Influenza [Recovering/Resolving]
  - Oral pain [Unknown]
  - Dyspnoea [Unknown]
  - Mouth swelling [Unknown]
  - Pain in jaw [Unknown]
  - Movement disorder [Unknown]
  - Wound [Unknown]
  - Gastrooesophageal reflux disease [Unknown]
  - Pain in extremity [Unknown]
  - Coordination abnormal [Recovered/Resolved]
  - Oral discomfort [Unknown]
  - Anxiety [Unknown]
  - Pain [Unknown]
  - Hypoaesthesia [Unknown]
  - Asthenia [Unknown]
  - Constipation [Not Recovered/Not Resolved]
  - Blood calcium increased [Unknown]
  - Exostosis [Unknown]
  - Ataxia [Unknown]
  - Hernia [Unknown]
  - Exostosis of jaw [Unknown]
  - Gait deviation [Unknown]
  - Dental caries [Unknown]
  - Neuropathy peripheral [Unknown]
  - Localised infection [Not Recovered/Not Resolved]
  - Exposed bone in jaw [Unknown]

NARRATIVE: CASE EVENT DATE: 201103
